FAERS Safety Report 10467592 (Version 1)
Quarter: 2014Q3

REPORT INFORMATION
  Report Type: Spontaneous
  Country: US (occurrence: US)
  Receive Date: 20140922
  Receipt Date: 20140922
  Transmission Date: 20150326
  Serious: Yes (Death, Hospitalization)
  Sender: FDA-Public Use
  Company Number: US-GLAXOSMITHKLINE-A1089225A

PATIENT
  Age: 59 Year
  Sex: Female

DRUGS (17)
  1. NEBULIZER TREATMENT [Concomitant]
  2. FLUTICASONE NASAL SPRAY [Concomitant]
     Active Substance: FLUTICASONE\FLUTICASONE PROPIONATE
  3. KLOR-CON [Concomitant]
     Active Substance: POTASSIUM CHLORIDE
  4. FOLIC ACID. [Concomitant]
     Active Substance: FOLIC ACID
  5. ALBUTEROL. [Concomitant]
     Active Substance: ALBUTEROL
  6. DALIRESP [Concomitant]
     Active Substance: ROFLUMILAST
  7. ADVAIR HFA [Suspect]
     Active Substance: FLUTICASONE PROPIONATE\SALMETEROL XINAFOATE
     Indication: EMPHYSEMA
     Dosage: 1PUFF TWICE PER DAY
     Route: 055
  8. FERROUS SULFATE [Concomitant]
     Active Substance: FERROUS SULFATE\FERROUS SULFATE, DRIED
  9. FLUVOXAMINE [Concomitant]
     Active Substance: FLUVOXAMINE
  10. PROAIR HFA [Concomitant]
     Active Substance: ALBUTEROL SULFATE
  11. HYDROXYZINE [Concomitant]
     Active Substance: HYDROXYZINE\HYDROXYZINE HYDROCHLORIDE
  12. METOPROLOL SUCCINATE. [Concomitant]
     Active Substance: METOPROLOL SUCCINATE
  13. FUROSEMIDE. [Concomitant]
     Active Substance: FUROSEMIDE
  14. SPIRIVA [Concomitant]
     Active Substance: TIOTROPIUM BROMIDE MONOHYDRATE
  15. PANTOPRAZOLE [Concomitant]
     Active Substance: PANTOPRAZOLE SODIUM
  16. BENAZEPRIL [Concomitant]
     Active Substance: BENAZEPRIL\BENAZEPRIL HYDROCHLORIDE
  17. OXYGEN. [Concomitant]
     Active Substance: OXYGEN

REACTIONS (4)
  - Dyspnoea [Fatal]
  - Endotracheal intubation [Fatal]
  - Resuscitation [Fatal]
  - Respiratory failure [Fatal]

NARRATIVE: CASE EVENT DATE: 201409
